FAERS Safety Report 10206621 (Version 1)
Quarter: 2014Q2

REPORT INFORMATION
  Report Type: Spontaneous
  Country: US (occurrence: US)
  Receive Date: 20140530
  Receipt Date: 20140530
  Transmission Date: 20141212
  Serious: Yes (Death, Other)
  Sender: FDA-Public Use
  Company Number: US-PFIZER INC-2014148684

PATIENT
  Age: 84 Year
  Sex: Male

DRUGS (1)
  1. XELJANZ [Suspect]
     Dosage: 5 MG, UNK

REACTIONS (1)
  - Death [Fatal]
